FAERS Safety Report 14350053 (Version 1)
Quarter: 2018Q1

REPORT INFORMATION
  Report Type: Report from Study
  Country: US (occurrence: US)
  Receive Date: 20180104
  Receipt Date: 20180104
  Transmission Date: 20180509
  Serious: Yes (Other)
  Sender: FDA-Public Use
  Company Number: US-BAYER-2017-250276

PATIENT
  Age: 29 Year
  Sex: Female

DRUGS (2)
  1. PRENATAL 1+1 [VIT C,CA+,D3,CU+,B12,FE+ FUMAR,B3,B6,RETINOL,B2,B1HC [Concomitant]
  2. BETASERON [Suspect]
     Active Substance: INTERFERON BETA-1B
     Indication: MULTIPLE SCLEROSIS
     Dosage: UNK
     Dates: start: 20160817, end: 20171101

REACTIONS (2)
  - Foetal heart rate disorder [None]
  - Maternal exposure during pregnancy [None]
